FAERS Safety Report 9419467 (Version 1)
Quarter: 2013Q3

REPORT INFORMATION
  Report Type: Spontaneous
  Country: US (occurrence: US)
  Receive Date: 20130725
  Receipt Date: 20130725
  Transmission Date: 20140515
  Serious: Yes (Hospitalization, Other)
  Sender: FDA-Public Use
  Company Number: US-ASTRAZENECA-2013SE54647

PATIENT
  Age: 80 Year
  Sex: Male
  Weight: 77.1 kg

DRUGS (7)
  1. CASODEX [Suspect]
     Route: 048
     Dates: start: 201304, end: 20130713
  2. LISINOPRIL [Suspect]
     Route: 048
  3. VESICARE [Suspect]
     Route: 065
     Dates: end: 201307
  4. VITAMIN D [Concomitant]
     Indication: SUPPLEMENTATION THERAPY
     Dosage: 1000 UNITS DAILY
  5. ONE A DAY VITAMIN [Concomitant]
     Indication: SUPPLEMENTATION THERAPY
     Dosage: DAILY
  6. CALCIUM CITRATE [Concomitant]
     Indication: SUPPLEMENTATION THERAPY
     Dosage: 500 U 400 MG DAILY
  7. FERMOGON INJECTION [Concomitant]
     Indication: PROSTATE CANCER

REACTIONS (19)
  - Back pain [Unknown]
  - Malignant neoplasm progression [Unknown]
  - Urinary bladder haemorrhage [Unknown]
  - Rib fracture [Unknown]
  - Anaemia [Unknown]
  - Mobility decreased [Unknown]
  - Pallor [Unknown]
  - Weight decreased [Unknown]
  - Speech disorder [Unknown]
  - Muscle atrophy [Unknown]
  - Dysphonia [Unknown]
  - Influenza like illness [Unknown]
  - Skin atrophy [Unknown]
  - Glaucoma [Unknown]
  - Dry mouth [Not Recovered/Not Resolved]
  - Constipation [Unknown]
  - Decreased appetite [Unknown]
  - Depressed mood [Unknown]
  - Asthenia [Unknown]
